FAERS Safety Report 15660585 (Version 6)
Quarter: 2019Q2

REPORT INFORMATION
  Report Type: Report from Study
  Country: FI (occurrence: FI)
  Receive Date: 20181127
  Receipt Date: 20190423
  Transmission Date: 20190711
  Serious: Yes (Life-Threatening, Hospitalization, Other)
  Sender: FDA-Public Use
  Company Number: FI-ACTELION-A-CH2018-182049

PATIENT
  Age: 75 Year
  Sex: Female
  Weight: 63 kg

DRUGS (25)
  1. SILDENAFIL. [Concomitant]
     Active Substance: SILDENAFIL
     Indication: PULMONARY ARTERIAL HYPERTENSION
     Dosage: 120 MG, QD
     Route: 048
     Dates: start: 20160204
  2. CALCIUMCARBONAT [Concomitant]
     Indication: PROPHYLAXIS
     Dosage: UNK
     Route: 048
     Dates: start: 20160509
  3. AZAMUN [Concomitant]
     Active Substance: AZATHIOPRINE
     Indication: PULMONARY FIBROSIS
     Dosage: UNK
     Route: 048
     Dates: start: 20180906
  4. OPSUMIT [Suspect]
     Active Substance: MACITENTAN
     Indication: PULMONARY ARTERIAL HYPERTENSION
     Dosage: 10 MG, QD
     Route: 048
     Dates: start: 20160519
  5. PREDNISOLON [Concomitant]
     Active Substance: PREDNISOLONE
     Indication: PULMONARY FIBROSIS
  6. GAVISCON [Concomitant]
     Active Substance: ALUMINUM HYDROXIDE\MAGNESIUM CARBONATE
     Indication: DYSPEPSIA
     Dosage: UNK
     Route: 048
     Dates: start: 20180328, end: 20181110
  7. EMCONCOR [Concomitant]
     Active Substance: BISOPROLOL FUMARATE
     Indication: CORONARY ARTERY DISEASE
     Dosage: UNK
     Route: 048
     Dates: start: 20180813
  8. ATORVASTATIN [Concomitant]
     Active Substance: ATORVASTATIN
     Indication: DYSLIPIDAEMIA
     Dosage: UNK
     Route: 048
     Dates: start: 20160615
  9. PANTOPRAZOLE [Concomitant]
     Active Substance: PANTOPRAZOLE
     Indication: PROPHYLAXIS
     Dosage: UNK
     Route: 048
     Dates: start: 20180328
  10. PRIMASPAN [Concomitant]
     Active Substance: ASPIRIN
     Indication: CORONARY ARTERY DISEASE
     Dosage: UNK
     Route: 048
     Dates: start: 20150906, end: 20181114
  11. KLEXANE [Concomitant]
     Active Substance: ENOXAPARIN
     Indication: ACUTE CORONARY SYNDROME
     Dosage: UNK
     Route: 058
     Dates: start: 20181110, end: 20181112
  12. UPTRAVI [Interacting]
     Active Substance: SELEXIPAG
     Dosage: 2400 MCG, QD
     Route: 048
     Dates: start: 20181105, end: 20181112
  13. SPIRONOLACTONE. [Concomitant]
     Active Substance: SPIRONOLACTONE
     Indication: PULMONARY ARTERIAL HYPERTENSION
     Dosage: UNK
     Route: 048
     Dates: start: 20180813
  14. PROLIA [Concomitant]
     Active Substance: DENOSUMAB
     Indication: PULMONARY FIBROSIS
     Dosage: UNK
     Route: 058
     Dates: start: 20180809
  15. FUROSEMIDE. [Concomitant]
     Active Substance: FUROSEMIDE
     Indication: PULMONARY HYPERTENSION
     Dosage: UNK
     Route: 048
     Dates: start: 20180813
  16. UPTRAVI [Interacting]
     Active Substance: SELEXIPAG
     Dosage: 1600 MCG, QD
     Route: 048
     Dates: start: 20181029, end: 20181105
  17. CLOPIDOGREL [Interacting]
     Active Substance: CLOPIDOGREL BISULFATE
     Indication: MYOCARDIAL ISCHAEMIA
     Dosage: UNK
     Route: 048
     Dates: start: 20181110, end: 20181111
  18. PREDNISOLON [Concomitant]
     Active Substance: PREDNISOLONE
     Indication: INTERSTITIAL LUNG DISEASE
     Dosage: UNK
     Route: 048
     Dates: start: 20180417
  19. CEFUROXIME. [Concomitant]
     Active Substance: CEFUROXIME
     Indication: INFECTION
     Dosage: UNK
     Route: 048
     Dates: start: 20180809, end: 20181110
  20. NITRO [Concomitant]
     Active Substance: NITROGLYCERIN
     Indication: CORONARY ARTERY DISEASE
     Dosage: UNK
     Dates: start: 20120823
  21. UPTRAVI [Suspect]
     Active Substance: SELEXIPAG
     Indication: PULMONARY ARTERIAL HYPERTENSION
     Dosage: 400 MCG, QD
     Route: 048
     Dates: start: 20181022, end: 20181028
  22. CARDACE [Concomitant]
     Active Substance: RAMIPRIL
     Indication: CORONARY ARTERY DISEASE
     Dosage: UNK
     Route: 048
     Dates: start: 20160406
  23. ATROVENT [Concomitant]
     Active Substance: IPRATROPIUM BROMIDE
     Indication: INTERSTITIAL LUNG DISEASE
     Dosage: UNK
     Route: 055
     Dates: start: 20160330
  24. ARTELAC [Concomitant]
     Active Substance: HYPROMELLOSES
     Indication: DRY EYE
     Dosage: UNK
     Route: 050
     Dates: start: 20180101
  25. COHEMIN [Concomitant]
     Indication: VITAMIN B12 DEFICIENCY
     Dosage: UNK
     Route: 030
     Dates: start: 20121006

REACTIONS (15)
  - Troponin T increased [Recovered/Resolved]
  - Percutaneous coronary intervention [Unknown]
  - Stent placement [Unknown]
  - Chest pain [Recovered/Resolved]
  - Nausea [Recovered/Resolved]
  - Haematochezia [Recovered/Resolved]
  - Drug interaction [Unknown]
  - Osteoarthritis [Unknown]
  - Angina pectoris [Recovered/Resolved]
  - Gastrointestinal haemorrhage [Recovered/Resolved]
  - Myocardial ischaemia [Recovered/Resolved]
  - Transfusion [Unknown]
  - Electrocardiogram change [Recovered/Resolved]
  - N-terminal prohormone brain natriuretic peptide increased [Recovered/Resolved]
  - Anaemia [Unknown]

NARRATIVE: CASE EVENT DATE: 20181110
